FAERS Safety Report 23996261 (Version 2)
Quarter: 2024Q3

REPORT INFORMATION
  Report Type: Spontaneous
  Country: US (occurrence: US)
  Receive Date: 20240620
  Receipt Date: 20240705
  Transmission Date: 20241017
  Serious: Yes (Life-Threatening, Hospitalization)
  Sender: TEVA
  Company Number: US-TEVA-VS-3209386

PATIENT
  Age: 34 Year
  Sex: Male

DRUGS (5)
  1. CLOZAPINE [Interacting]
     Active Substance: CLOZAPINE
     Indication: Bipolar disorder
     Route: 065
  2. CLOZAPINE [Interacting]
     Active Substance: CLOZAPINE
     Indication: Bipolar disorder
     Dosage: TITRATED OVER 3 MONTHS FROM 100 TO 450 MG DAILY
     Route: 065
  3. SENNA [Concomitant]
     Active Substance: SENNA LEAF\SENNOSIDES\SENNOSIDES A AND B
     Indication: Constipation
     Route: 065
  4. QUETIAPINE [Interacting]
     Active Substance: QUETIAPINE
     Indication: Bipolar disorder
     Route: 065
  5. BENZTROPINE [Interacting]
     Active Substance: BENZTROPINE
     Indication: Extrapyramidal disorder
     Route: 065

REACTIONS (11)
  - Gastrointestinal hypomotility [Unknown]
  - Enteritis [Unknown]
  - Septic shock [Unknown]
  - Stupor [Unknown]
  - Drug interaction [Unknown]
  - Clostridium test positive [Unknown]
  - Intestinal obstruction [Unknown]
  - Drug ineffective [Unknown]
  - Pulse abnormal [Unknown]
  - Loss of consciousness [Unknown]
  - Dehydration [Unknown]
